FAERS Safety Report 5500840-1 (Version None)
Quarter: 2007Q4

REPORT INFORMATION
  Report Type: 
  Country: None (occurrence: None)
  Receive Date: 20071029
  Receipt Date: 20071019
  Transmission Date: 20080405
  Serious: Yes (Hospitalization)
  Sender: FDA-Public Use
  Company Number: B0492726A

PATIENT
  Age: 78 Year
  Sex: Male
  Weight: 92 kg

DRUGS (6)
  1. ARIXTRA [Suspect]
     Dosage: 2.5MG PER DAY
     Route: 058
     Dates: start: 20070911, end: 20070101
  2. CORTICOIDS [Concomitant]
     Indication: ASTHMA
     Route: 055
  3. CORTICOIDS [Concomitant]
     Indication: POLYARTHRITIS
     Route: 048
  4. PLAVIX [Concomitant]
     Dosage: 1TAB PER DAY
     Route: 048
     Dates: end: 20070101
  5. FOZITEC [Concomitant]
  6. FOSINOPRIL SODIUM AND HYDROCHLOROTHIAZIDE [Concomitant]
     Indication: ARTERITIS

REACTIONS (11)
  - ANAEMIA [None]
  - BLOOD BLISTER [None]
  - CHRONIC RESPIRATORY FAILURE [None]
  - DIARRHOEA [None]
  - GANGRENE [None]
  - HAEMATOMA [None]
  - OEDEMA PERIPHERAL [None]
  - POST PROCEDURAL HAEMATOMA [None]
  - PURULENCE [None]
  - SKIN NECROSIS [None]
  - STAPHYLOCOCCAL INFECTION [None]
